FAERS Safety Report 6426741-2 (Version None)
Quarter: 2009Q4

REPORT INFORMATION
  Report Type: 
  Country: None (occurrence: None)
  Receive Date: 20091029
  Receipt Date: 20091012
  Transmission Date: 20100525
  Serious: No
  Sender: FDA-Public Use
  Company Number: B0598980A

PATIENT
  Age: 42 Year
  Sex: Male

DRUGS (1)
  1. TRIZIVIR [Suspect]
     Indication: HIV INFECTION

REACTIONS (3)
  - HYPERTROPHY [None]
  - IATROGENIC INJURY [None]
  - LIPODYSTROPHY ACQUIRED [None]
